FAERS Safety Report 21879717 (Version 1)
Quarter: 2023Q1

REPORT INFORMATION
  Report Type: Spontaneous
  Country: US (occurrence: None)
  Receive Date: 20230117
  Receipt Date: 20230117
  Transmission Date: 20230418
  Serious: Yes (Death)
  Sender: FDA-Public Use
  Company Number: None

PATIENT
  Age: 30 Year
  Sex: Male
  Weight: 99 kg

DRUGS (7)
  1. GEODON [Suspect]
     Active Substance: ZIPRASIDONE HYDROCHLORIDE\ZIPRASIDONE MESYLATE
     Indication: Drug therapy
     Dosage: OTHER QUANTITY : 1 INJECTION(S);?OTHER FREQUENCY : ONCE;?
     Route: 058
     Dates: start: 20221214, end: 20221214
  2. Lasix 20MG [Concomitant]
  3. AMOXICILLIN [Concomitant]
     Active Substance: AMOXICILLIN
  4. ATORVASTATIN [Concomitant]
     Active Substance: ATORVASTATIN
  5. CARVEDILOL [Concomitant]
     Active Substance: CARVEDILOL
  6. VITAMINS [Concomitant]
     Active Substance: VITAMINS
  7. thiamine 100 mg [Concomitant]

REACTIONS (10)
  - Drug reaction with eosinophilia and systemic symptoms [None]
  - Speech disorder [None]
  - Mental impairment [None]
  - Product use issue [None]
  - Skin exfoliation [None]
  - Swelling face [None]
  - Discharge [None]
  - Rash [None]
  - Alopecia [None]
  - Alopecia [None]

NARRATIVE: CASE EVENT DATE: 20221214
